FAERS Safety Report 10866993 (Version 1)
Quarter: 2015Q1

REPORT INFORMATION
  Report Type: Spontaneous
  Country: US (occurrence: None)
  Receive Date: 20150220
  Receipt Date: 20150220
  Transmission Date: 20150721
  Serious: Yes (Hospitalization)
  Sender: FDA-Public Use
  Company Number: None

PATIENT
  Age: 66 Year
  Sex: Male
  Weight: 108 kg

DRUGS (3)
  1. 5FU [Suspect]
     Active Substance: FLUOROURACIL
     Dosage: CONTINOUS IV
     Route: 042
  2. TAXOL [Suspect]
     Active Substance: PACLITAXEL
     Dosage: EVERY MONDAY
     Route: 042
  3. HYDROXUREA [Concomitant]

REACTIONS (3)
  - Nausea [None]
  - Febrile neutropenia [None]
  - Vomiting [None]

NARRATIVE: CASE EVENT DATE: 20150104
